FAERS Safety Report 5266966-5 (Version None)
Quarter: 2007Q1

REPORT INFORMATION
  Report Type: 
  Country: None (occurrence: None)
  Receive Date: 20070316
  Receipt Date: 20070309
  Transmission Date: 20070707
  Serious: Yes (Other)
  Sender: FDA-Public Use
  Company Number: IT-BRISTOL-MYERS SQUIBB COMPANY-13707229

PATIENT

DRUGS (2)
  1. EFAVIRENZ [Suspect]
     Indication: HIV INFECTION
  2. ZIDOVUDINE [Interacting]
     Indication: HIV INFECTION

REACTIONS (2)
  - DRUG INTERACTION [None]
  - ELECTROCARDIOGRAM QT CORRECTED INTERVAL PROLONGED [None]
